FAERS Safety Report 5824896-1 (Version None)
Quarter: 2008Q3

REPORT INFORMATION
  Report Type: 
  Country: None (occurrence: None)
  Receive Date: 20080728
  Receipt Date: 20080707
  Transmission Date: 20090109
  Serious: No
  Sender: FDA-Public Use
  Company Number: US-BOEHRINGER INGELHEIM GMBH, GERMANY-2008-BP-10616BP

PATIENT
  Sex: Female

DRUGS (8)
  1. SPIRIVA [Suspect]
     Indication: CHRONIC OBSTRUCTIVE PULMONARY DISEASE
     Route: 055
     Dates: start: 20060101
  2. SPIRIVA [Suspect]
     Indication: EMPHYSEMA
  3. SPIRIVA [Suspect]
     Indication: BRONCHITIS CHRONIC
  4. SPIRIVA [Suspect]
     Indication: ASTHMA
  5. SPIRIVA [Suspect]
     Indication: DYSPNOEA
  6. ADVAIR DISKUS 100/50 [Concomitant]
  7. ALBUTEROL SULFATE [Concomitant]
  8. ATROVENT HFA [Concomitant]

REACTIONS (2)
  - DIZZINESS [None]
  - HOT FLUSH [None]
